FAERS Safety Report 5863809-3 (Version None)
Quarter: 2008Q3

REPORT INFORMATION
  Report Type: 
  Country: None (occurrence: None)
  Receive Date: 20080827
  Receipt Date: 20080811
  Transmission Date: 20090109
  Serious: Yes (Disabling, Other)
  Sender: FDA-Public Use
  Company Number: PAR_02090_2008

PATIENT
  Sex: Female
  Weight: 74.8435 kg

DRUGS (8)
  1. MINOXIDIL [Suspect]
     Indication: HYPERTENSION
     Dosage: 2.5 MG QD ORAL
     Route: 048
     Dates: start: 20070702, end: 20070801
  2. MINOXIDIL [Suspect]
     Indication: HYPERTENSION
     Dosage: 2.5 MG QD ORAL
     Route: 048
  3. SINGULAIR [Concomitant]
  4. XANAX [Concomitant]
  5. NORVASC /00972491/ [Concomitant]
  6. AVAPRO [Concomitant]
  7. XOPENEX [Concomitant]
  8. CLONIDINE [Concomitant]

REACTIONS (6)
  - ALOPECIA [None]
  - DEPRESSION [None]
  - HAIR GROWTH ABNORMAL [None]
  - HYPOPHAGIA [None]
  - SKIN DISCOLOURATION [None]
  - SWELLING FACE [None]
